FAERS Safety Report 5911878-4 (Version None)
Quarter: 2008Q4

REPORT INFORMATION
  Report Type: 
  Country: None (occurrence: None)
  Receive Date: 20081006
  Receipt Date: 20080923
  Transmission Date: 20090506
  Serious: Yes (Hospitalization)
  Sender: FDA-Public Use
  Company Number: 230009M08IRL

PATIENT

DRUGS (1)
  1. REBIF [Suspect]
     Dosage: 44 MCG
     Dates: start: 20040121

REACTIONS (1)
  - OPTIC NEURITIS [None]
